FAERS Safety Report 8559312-2 (Version None)
Quarter: 2012Q3

REPORT INFORMATION
  Report Type: 
  Country: None (occurrence: None)
  Receive Date: 20120802
  Receipt Date: 20120730
  Transmission Date: 20120928
  Serious: Yes (Hospitalization, Other)
  Sender: FDA-Public Use
  Company Number: PHHY2012FR052646

PATIENT
  Age: 60 Year
  Sex: Female

DRUGS (15)
  1. LITHIUM CARBONATE [Concomitant]
  2. CALCIUM CARBONATE [Concomitant]
  3. MODOPAR [Concomitant]
  4. AZILECT [Concomitant]
  5. SINEMET [Concomitant]
  6. OXYBUTYNIN [Concomitant]
  7. CLOZAPINE [Suspect]
     Indication: PSYCHOTIC DISORDER
     Dosage: 25 MG, DAILY
     Dates: start: 20111228, end: 20120530
  8. MIANSERINE G GAM [Suspect]
     Indication: DEPRESSION
     Dosage: 10 MG, UNK
     Route: 048
     Dates: start: 20120525, end: 20120531
  9. STALEVO 100 [Concomitant]
  10. MIRTAZAPINE [Concomitant]
  11. RIVOTRIL [Concomitant]
  12. CLOZAPINE [Suspect]
     Dosage: 12.5 MG, DAILY
     Dates: start: 20120613, end: 20120618
  13. CLOZAPINE [Suspect]
     Dosage: 50 MG, DAILY
     Dates: start: 20120101
  14. ATARAX [Concomitant]
  15. ACID ALENDRONIQUE [Concomitant]

REACTIONS (4)
  - LEUKOPENIA [None]
  - URINARY TRACT INFECTION [None]
  - DEPRESSION [None]
  - NEUTROPENIA [None]
